FAERS Safety Report 26173289 (Version 1)
Quarter: 2025Q4

REPORT INFORMATION
  Report Type: Spontaneous
  Country: CN (occurrence: CN)
  Receive Date: 20251218
  Receipt Date: 20251218
  Transmission Date: 20260118
  Serious: Yes (Hospitalization, Other)
  Sender: BAXTER
  Company Number: None

PATIENT
  Age: 3 Year
  Sex: Male
  Weight: 16 kg

DRUGS (5)
  1. CYCLOPHOSPHAMIDE [Suspect]
     Active Substance: CYCLOPHOSPHAMIDE
     Indication: Acute lymphocytic leukaemia
     Dosage: 0.67 G, QD + 0.9% SODIUM CHLORIDE INJECTION 250 ML (ONCE)
     Route: 041
     Dates: start: 20250812, end: 20250812
  2. SODIUM CHLORIDE [Suspect]
     Active Substance: SODIUM CHLORIDE
     Dosage: 250 ML, QD + CYCLOPHOSPHAMIDE FOR INJECTION 0.67 G (ONCE)
     Route: 041
     Dates: start: 20250812, end: 20250812
  3. SODIUM CHLORIDE [Suspect]
     Active Substance: SODIUM CHLORIDE
     Dosage: 250 ML, BID + CYTARABINE FOR INJECTION 0.67 G (Q12H)
     Route: 041
     Dates: start: 20250812, end: 20250814
  4. MERCAPTOPURINE [Suspect]
     Active Substance: MERCAPTOPURINE
     Indication: Acute lymphocytic leukaemia
     Dosage: 33 MG, QD, QN
     Route: 048
     Dates: start: 20250812, end: 20250815
  5. CYTARABINE [Suspect]
     Active Substance: CYTARABINE
     Indication: Acute lymphocytic leukaemia
     Dosage: 0.67 G, BID + 0.9% SODIUM CHLORIDE INJECTION 250 ML (Q12H)
     Route: 041
     Dates: start: 20250812, end: 20250814

REACTIONS (1)
  - Myelosuppression [Recovering/Resolving]

NARRATIVE: CASE EVENT DATE: 20250819
